FAERS Safety Report 11505116 (Version 1)
Quarter: 2015Q3

REPORT INFORMATION
  Report Type: Spontaneous
  Country: US (occurrence: US)
  Receive Date: 20150915
  Receipt Date: 20150915
  Transmission Date: 20151125
  Serious: No
  Sender: FDA-Public Use
  Company Number: US-ROCHE-716497

PATIENT
  Age: 58 Year
  Sex: Male
  Weight: 71.7 kg

DRUGS (3)
  1. PEGASYS [Suspect]
     Active Substance: PEGINTERFERON ALFA-2A
     Indication: HEPATITIS C
     Dosage: FORM: PRE FILLED SYRINGE. OTHER INDICATION: LYMPHOMA.
     Route: 065
  2. COPEGUS [Suspect]
     Active Substance: RIBAVIRIN
     Indication: HEPATITIS C
     Dosage: FORM: PILLS, DAILY IN DIVIDED DOSES. ON 19 JULY 2010 EVENING, HE TOOK 3 COPEGUS PILLS INSTEAD OF 2.
     Route: 065
  3. PEGASYS [Suspect]
     Active Substance: PEGINTERFERON ALFA-2A
     Route: 065

REACTIONS (5)
  - Red blood cell count decreased [Not Recovered/Not Resolved]
  - Incorrect dose administered [Unknown]
  - Chromaturia [Unknown]
  - Fatigue [Not Recovered/Not Resolved]
  - Neutrophil count decreased [Not Recovered/Not Resolved]

NARRATIVE: CASE EVENT DATE: 20100719
